FAERS Safety Report 18755771 (Version 1)
Quarter: 2021Q1

REPORT INFORMATION
  Report Type: Other
  Country: CA (occurrence: CA)
  Receive Date: 20210119
  Receipt Date: 20210119
  Transmission Date: 20210419
  Serious: Yes (Death, Other)
  Sender: FDA-Public Use
  Company Number: CA-APOTEX-2021AP001238

PATIENT
  Age: 76 Year
  Sex: Female

DRUGS (1)
  1. PRAVASTATIN. [Suspect]
     Active Substance: PRAVASTATIN
     Indication: BLOOD CHOLESTEROL INCREASED
     Dosage: 20 MILLIGRAM
     Route: 065

REACTIONS (10)
  - Confusional state [Fatal]
  - Rhabdomyolysis [Fatal]
  - Chronic kidney disease [Fatal]
  - Dementia [Fatal]
  - Cardiac failure congestive [Fatal]
  - Interstitial lung disease [Fatal]
  - Cognitive disorder [Fatal]
  - Liver disorder [Fatal]
  - Rheumatoid arthritis [Fatal]
  - Hallucination [Fatal]
